FAERS Safety Report 7969131-3 (Version None)
Quarter: 2011Q4

REPORT INFORMATION
  Report Type: 
  Country: None (occurrence: None)
  Receive Date: 20111209
  Receipt Date: 20110926
  Transmission Date: 20120403
  Serious: Yes (Other)
  Sender: FDA-Public Use
  Company Number: FR-ROCHE-1011088

PATIENT
  Weight: 61 kg

DRUGS (13)
  1. CLORAZEPATE DIPOTASSIUM [Concomitant]
     Dates: start: 20101026
  2. ESIDRIX [Concomitant]
     Dates: start: 20110810
  3. MYCOPHENOLATE MOFETIL (CELLCEPT) [Suspect]
     Indication: KIDNEY TRANSPLANT REJECTION
     Route: 048
     Dates: start: 20101011
  4. PREVISCAN [Concomitant]
     Dates: start: 20110213, end: 20110913
  5. NEBIVOLOL HCL [Concomitant]
     Dates: start: 20101105
  6. PREDNISONE TAB [Suspect]
     Indication: KIDNEY TRANSPLANT REJECTION
     Route: 048
     Dates: start: 20101012
  7. PANTOPRAZOLE SODIUM [Concomitant]
     Dates: start: 20101012
  8. EVEROLIMUS [Suspect]
     Indication: KIDNEY TRANSPLANT REJECTION
     Route: 048
     Dates: start: 20101119, end: 20110926
  9. CALCIDIA [Concomitant]
     Dates: start: 20110215, end: 20110809
  10. CRESTOR [Concomitant]
     Route: 048
     Dates: start: 20110706
  11. LANTUS [Concomitant]
     Route: 058
  12. NOVORAPID [Concomitant]
     Route: 058
     Dates: start: 20101026
  13. BACTRIM [Concomitant]
     Dates: start: 20110301

REACTIONS (1)
  - TRANSPLANT REJECTION [None]
